FAERS Safety Report 15857845 (Version 1)
Quarter: 2019Q1

REPORT INFORMATION
  Report Type: Spontaneous
  Country: US (occurrence: US)
  Receive Date: 20190123
  Receipt Date: 20190123
  Transmission Date: 20190417
  Serious: No
  Sender: FDA-Public Use
  Company Number: None

PATIENT
  Age: 55 Year
  Sex: Female
  Weight: 47.25 kg

DRUGS (6)
  1. TIZANIDINE 2MG [Suspect]
     Active Substance: TIZANIDINE
     Indication: NERVE COMPRESSION
     Dates: start: 20190121, end: 20190123
  2. DIEBETIC [Concomitant]
  3. GIMPRIDE [Concomitant]
  4. METFORMIN [Concomitant]
     Active Substance: METFORMIN HYDROCHLORIDE
  5. TIZANIDINE 2MG [Suspect]
     Active Substance: TIZANIDINE
     Indication: ROTATOR CUFF SYNDROME
     Dates: start: 20190121, end: 20190123
  6. VITAMIN D [Concomitant]
     Active Substance: CHOLECALCIFEROL

REACTIONS (2)
  - Pain [None]
  - Insomnia [None]

NARRATIVE: CASE EVENT DATE: 20190121
